FAERS Safety Report 15585574 (Version 1)
Quarter: 2018Q4

REPORT INFORMATION
  Report Type: Spontaneous
  Country: US (occurrence: US)
  Receive Date: 20181104
  Receipt Date: 20181104
  Transmission Date: 20190205
  Serious: No
  Sender: FDA-Public Use
  Company Number: US-PRINSTON PHARMACEUTICAL INC.-2017PRN00516

PATIENT
  Weight: 81.63 kg

DRUGS (6)
  1. VITAMIN D3 [Concomitant]
     Active Substance: CHOLECALCIFEROL
     Dosage: 2000 IU, 1X/DAY IN THE EVENING
  2. VALIUM [Suspect]
     Active Substance: DIAZEPAM
     Indication: ANXIETY
     Dosage: UNK, AS NEEDED
     Dates: start: 201611, end: 20171105
  3. PAROXETINE. [Suspect]
     Active Substance: PAROXETINE
     Indication: ANXIETY
     Dosage: 20 MG, 1X/DAY
     Route: 048
     Dates: start: 201611, end: 20171022
  4. PAROXETINE. [Suspect]
     Active Substance: PAROXETINE
     Dosage: 10 MG, 1X/DAY
     Route: 048
     Dates: start: 20171023
  5. SYNTHROID [Concomitant]
     Active Substance: LEVOTHYROXINE SODIUM
     Dosage: 50 ?G, 1X/DAY, IN THE MORNING
     Dates: start: 2014
  6. PRILOSEC [Concomitant]
     Active Substance: OMEPRAZOLE MAGNESIUM
     Dosage: 40 MG, 1X/DAY IN THE EVENING

REACTIONS (27)
  - Hyperaesthesia [Not Recovered/Not Resolved]
  - Anxiety [Not Recovered/Not Resolved]
  - Depressed mood [Unknown]
  - Chest pain [Unknown]
  - Somnolence [Unknown]
  - Disturbance in attention [Not Recovered/Not Resolved]
  - Gait disturbance [Not Recovered/Not Resolved]
  - Muscle twitching [Unknown]
  - Amnesia [Not Recovered/Not Resolved]
  - Fatigue [Recovering/Resolving]
  - Dizziness [Not Recovered/Not Resolved]
  - Memory impairment [Not Recovered/Not Resolved]
  - Feeling abnormal [Not Recovered/Not Resolved]
  - Headache [Not Recovered/Not Resolved]
  - Yawning [Recovering/Resolving]
  - Muscle spasms [Not Recovered/Not Resolved]
  - Confusional state [Not Recovered/Not Resolved]
  - Hypertension [Unknown]
  - Chest discomfort [Unknown]
  - Vomiting [Not Recovered/Not Resolved]
  - Paraesthesia [Unknown]
  - Tongue spasm [Recovered/Resolved]
  - Dry throat [Not Recovered/Not Resolved]
  - Drug interaction [Unknown]
  - Tremor [Not Recovered/Not Resolved]
  - Trance [Not Recovered/Not Resolved]
  - Blepharospasm [Unknown]

NARRATIVE: CASE EVENT DATE: 2016
